FAERS Safety Report 9241044 (Version 2)
Quarter: 2013Q2

REPORT INFORMATION
  Report Type: Spontaneous
  Country: US (occurrence: US)
  Receive Date: 20130419
  Receipt Date: 20130501
  Transmission Date: 20140414
  Serious: Yes (Hospitalization)
  Sender: FDA-Public Use
  Company Number: US-BIOGENIDEC-2013BI034182

PATIENT
  Age: 51 Year
  Sex: Female

DRUGS (1)
  1. AVONEX [Suspect]
     Indication: MULTIPLE SCLEROSIS
     Route: 030
     Dates: start: 20110310

REACTIONS (5)
  - Mouth injury [Recovered/Resolved]
  - Fall [Recovered/Resolved]
  - Tooth fracture [Recovered/Resolved]
  - Oral pain [Not Recovered/Not Resolved]
  - Memory impairment [Not Recovered/Not Resolved]
